FAERS Safety Report 4897115-0 (Version None)
Quarter: 2006Q1

REPORT INFORMATION
  Report Type: 
  Country: None (occurrence: None)
  Receive Date: 20060127
  Receipt Date: 20060113
  Transmission Date: 20060701
  Serious: Yes (Hospitalization, Other)
  Sender: FDA-Public Use
  Company Number: GB200601002235

PATIENT
  Sex: Male

DRUGS (1)
  1. CIALIS [Suspect]
     Indication: ERECTILE DYSFUNCTION
     Dates: start: 20040101, end: 20040101

REACTIONS (4)
  - INFLUENZA LIKE ILLNESS [None]
  - ORGAN FAILURE [None]
  - RASH [None]
  - SWELLING [None]
